FAERS Safety Report 24540209 (Version 1)
Quarter: 2024Q4

REPORT INFORMATION
  Report Type: Spontaneous
  Country: US (occurrence: None)
  Receive Date: 20241022
  Receipt Date: 20241022
  Transmission Date: 20250115
  Serious: Yes (Life-Threatening, Other)
  Sender: Public
  Company Number: None

PATIENT
  Age: 79 Year
  Sex: Female
  Weight: 58.5 kg

DRUGS (3)
  1. MIRTAZAPINE [Suspect]
     Active Substance: MIRTAZAPINE
  2. ESCITALOPRAM [Concomitant]
     Active Substance: ESCITALOPRAM OXALATE
  3. QUETIAPINE FUMARATE [Concomitant]
     Active Substance: QUETIAPINE FUMARATE

REACTIONS (9)
  - Panic attack [None]
  - Anxiety [None]
  - Nausea [None]
  - Night sweats [None]
  - Glomerular filtration rate decreased [None]
  - Abnormal dreams [None]
  - Blood cholesterol increased [None]
  - Weight decreased [None]
  - Suicidal ideation [None]

NARRATIVE: CASE EVENT DATE: 20231005
